FAERS Safety Report 9868296 (Version 1)
Quarter: 2014Q1

REPORT INFORMATION
  Report Type: Spontaneous
  Country: US (occurrence: US)
  Receive Date: 20140204
  Receipt Date: 20140204
  Transmission Date: 20141002
  Serious: Yes (Other)
  Sender: FDA-Public Use
  Company Number: US-PFIZER INC-2014028628

PATIENT
  Sex: Female

DRUGS (3)
  1. ZYVOX [Suspect]
     Dosage: UNK
  2. AMOXICILLIN [Suspect]
     Dosage: UNK
  3. DOXYCYCLINE HYCLATE [Suspect]
     Dosage: UNK

REACTIONS (6)
  - Mental impairment [Unknown]
  - Mycobacterial infection [Unknown]
  - Aggression [Unknown]
  - Visual impairment [Unknown]
  - Impaired driving ability [Unknown]
  - Malaise [Unknown]
